FAERS Safety Report 11165221 (Version 1)
Quarter: 2015Q2

REPORT INFORMATION
  Report Type: Spontaneous
  Country: US (occurrence: None)
  Receive Date: 20150603
  Receipt Date: 20150603
  Transmission Date: 20150821
  Serious: Yes (Hospitalization)
  Sender: FDA-Public Use
  Company Number: None

PATIENT
  Age: 74 Year
  Sex: Female

DRUGS (8)
  1. LOSARTAN/HCTZ [Concomitant]
     Active Substance: HYDROCHLOROTHIAZIDE\LOSARTAN
  2. CRESTOR [Concomitant]
     Active Substance: ROSUVASTATIN CALCIUM
  3. INSULIN [Concomitant]
     Active Substance: INSULIN NOS
  4. CENTRUM SILVER 50+ VITAMIN D [Concomitant]
  5. GLUMETZA [Concomitant]
     Active Substance: METFORMIN HYDROCHLORIDE
  6. TRADJENTA [Concomitant]
     Active Substance: LINAGLIPTIN
  7. HYDROMORPHONE HCL [Suspect]
     Active Substance: HYDROMORPHONE HYDROCHLORIDE
     Indication: PROCEDURAL PAIN
     Route: 048
     Dates: start: 20150507, end: 20150507
  8. TOPROL XL [Concomitant]
     Active Substance: METOPROLOL SUCCINATE

REACTIONS (2)
  - Oxygen saturation decreased [None]
  - Somnolence [None]

NARRATIVE: CASE EVENT DATE: 20150507
